FAERS Safety Report 24032251 (Version 1)
Quarter: 2024Q2

REPORT INFORMATION
  Report Type: Spontaneous
  Country: FR (occurrence: FR)
  Receive Date: 20240630
  Receipt Date: 20240630
  Transmission Date: 20240716
  Serious: Yes (Hospitalization)
  Sender: FDA-Public Use
  Company Number: None

PATIENT
  Age: 80 Year
  Sex: Male
  Weight: 96 kg

DRUGS (11)
  1. XARELTO [Suspect]
     Active Substance: RIVAROXABAN
     Indication: Deep vein thrombosis
     Route: 048
     Dates: start: 20240319, end: 20240322
  2. TROSPIUM CHLORIDE [Suspect]
     Active Substance: TROSPIUM CHLORIDE
     Indication: Urinary incontinence
     Route: 048
     Dates: start: 20240321, end: 20240322
  3. ACETAMINOPHEN [Concomitant]
     Active Substance: ACETAMINOPHEN
  4. TELMISARTAN [Concomitant]
     Active Substance: TELMISARTAN
  5. DAPAGLIFLOZIN [Concomitant]
     Active Substance: DAPAGLIFLOZIN
  6. METFORMIN HYDROCHLORIDE [Concomitant]
     Active Substance: METFORMIN HYDROCHLORIDE
  7. BISOPROLOL FUMARATE [Concomitant]
     Active Substance: BISOPROLOL FUMARATE
  8. LERCANIDIPINE CRISTERS [Concomitant]
  9. TOVIAZ [Concomitant]
     Active Substance: FESOTERODINE FUMARATE
  10. LACTITOL [Concomitant]
     Active Substance: LACTITOL
  11. DUPHALAC [Concomitant]
     Active Substance: LACTULOSE

REACTIONS (1)
  - Erythema [Recovering/Resolving]

NARRATIVE: CASE EVENT DATE: 20240322
